FAERS Safety Report 8559712-0 (Version None)
Quarter: 2012Q3

REPORT INFORMATION
  Report Type: 
  Country: None (occurrence: None)
  Receive Date: 20120802
  Receipt Date: 20120730
  Transmission Date: 20120928
  Serious: No
  Sender: FDA-Public Use
  Company Number: US-PFIZER INC-2012184803

PATIENT

DRUGS (2)
  1. CYMBALTA [Suspect]
     Indication: DEPRESSION
     Dosage: UNK
  2. CHANTIX [Suspect]
     Dosage: UNK

REACTIONS (5)
  - FEELING ABNORMAL [None]
  - APATHY [None]
  - IRRITABILITY [None]
  - FLATULENCE [None]
  - CONSTIPATION [None]
